FAERS Safety Report 14629599 (Version 1)
Quarter: 2018Q1

REPORT INFORMATION
  Report Type: Spontaneous
  Country: US (occurrence: US)
  Receive Date: 20180312
  Receipt Date: 20180312
  Transmission Date: 20180509
  Serious: Yes (Hospitalization)
  Sender: FDA-Public Use
  Company Number: None

PATIENT
  Sex: Male

DRUGS (1)
  1. SENSIPAR [Suspect]
     Active Substance: CINACALCET HYDROCHLORIDE
     Indication: RENAL HYPERTROPHY
     Dosage: ?          OTHER FREQUENCY:30 MG / 3XWEEKLY;?
     Route: 048

REACTIONS (1)
  - Renal transplant [None]
